FAERS Safety Report 4711516-2 (Version None)
Quarter: 2005Q3

REPORT INFORMATION
  Report Type: 
  Country: None (occurrence: None)
  Receive Date: 20050711
  Receipt Date: 20050711
  Transmission Date: 20060218
  Serious: Yes (Other)
  Sender: FDA-Public Use
  Company Number: None

PATIENT
  Sex: Female

DRUGS (6)
  1. PARAPLATIN [Suspect]
     Indication: OVARIAN CANCER
     Dosage: IV INFUSION   INTRAVENOUS
     Route: 042
     Dates: start: 20050629, end: 20050629
  2. ALOXI [Concomitant]
  3. BENADRYL [Concomitant]
  4. CIMETIDINE [Concomitant]
  5. TAXOL [Concomitant]
  6. DECADRON [Concomitant]

REACTIONS (8)
  - ANXIETY [None]
  - CHEST DISCOMFORT [None]
  - DIARRHOEA [None]
  - DYSPNOEA [None]
  - HYPERHIDROSIS [None]
  - OXYGEN SATURATION DECREASED [None]
  - PRURITUS [None]
  - URINARY INCONTINENCE [None]
